FAERS Safety Report 8397909-3 (Version None)
Quarter: 2012Q2

REPORT INFORMATION
  Report Type: 
  Country: None (occurrence: None)
  Receive Date: 20120531
  Receipt Date: 20120528
  Transmission Date: 20120825
  Serious: Yes (Hospitalization)
  Sender: FDA-Public Use
  Company Number: PHHY2012AR045974

PATIENT
  Sex: Male

DRUGS (3)
  1. STALEVO 100 [Suspect]
     Dosage: 550 MG, PER DAY
     Route: 048
     Dates: start: 20120401
  2. STALEVO 100 [Suspect]
     Dosage: 500 MG, PER DAY
     Route: 048
     Dates: start: 20120401
  3. STALEVO 100 [Suspect]
     Indication: PARKINSON'S DISEASE
     Dosage: 600 MG, PER DAY
     Route: 048
     Dates: start: 20120301

REACTIONS (5)
  - JOINT INJURY [None]
  - SENILE DEMENTIA [None]
  - FALL [None]
  - MUSCULOSKELETAL STIFFNESS [None]
  - GAIT DISTURBANCE [None]
